FAERS Safety Report 4795487-9 (Version None)
Quarter: 2005Q4

REPORT INFORMATION
  Report Type: 
  Country: None (occurrence: None)
  Receive Date: 20051012
  Receipt Date: 20050829
  Transmission Date: 20060501
  Serious: Yes (Death)
  Sender: FDA-Public Use
  Company Number: BE-JNJFOC-20050301780

PATIENT
  Sex: Female
  Weight: 40 kg

DRUGS (2)
  1. BLINDED; GALANTAMINE [Suspect]
     Route: 048
  2. PLACEBO [Suspect]
     Route: 048
     Dates: start: 20041217, end: 20050305

REACTIONS (2)
  - BRONCHOSPASM [None]
  - SUDDEN DEATH [None]
